FAERS Safety Report 7126061-7 (Version None)
Quarter: 2010Q4

REPORT INFORMATION
  Report Type: 
  Country: None (occurrence: None)
  Receive Date: 20101129
  Receipt Date: 20101116
  Transmission Date: 20110411
  Serious: Yes (Death)
  Sender: FDA-Public Use
  Company Number: JP-MERCK-1009USA04262

PATIENT
  Age: 65 Year
  Sex: Male

DRUGS (12)
  1. EMEND [Suspect]
     Indication: PROPHYLAXIS OF NAUSEA AND VOMITING
     Route: 048
     Dates: start: 20100830, end: 20100830
  2. EMEND [Suspect]
     Route: 048
     Dates: start: 20100831, end: 20100903
  3. ALIMTA [Suspect]
     Indication: CHEMOTHERAPY
     Route: 042
     Dates: start: 20100830, end: 20100830
  4. DEXART [Suspect]
     Indication: PROPHYLAXIS OF NAUSEA AND VOMITING
     Route: 042
     Dates: start: 20100830, end: 20100901
  5. PLATOSIN [Suspect]
     Indication: CHEMOTHERAPY
     Route: 042
     Dates: start: 20100830, end: 20100830
  6. DECADRON [Suspect]
     Indication: RASH
     Route: 048
     Dates: start: 20100831, end: 20100902
  7. KYTRIL [Concomitant]
     Route: 065
     Dates: start: 20100831, end: 20100901
  8. LASIX [Concomitant]
     Route: 065
     Dates: start: 20100830, end: 20100830
  9. MANNITOL [Concomitant]
     Route: 042
     Dates: start: 20100830, end: 20100901
  10. PANVITAN [Concomitant]
     Route: 048
     Dates: start: 20100811, end: 20100903
  11. STRONGER NEO-MINOPHAGEN C [Concomitant]
     Route: 065
     Dates: start: 20100826, end: 20100903
  12. ALOXI [Concomitant]
     Route: 042
     Dates: start: 20100830, end: 20100830

REACTIONS (19)
  - ACIDOSIS [None]
  - CARDIAC ARREST [None]
  - CEREBRAL INFARCTION [None]
  - CYANOSIS [None]
  - DECREASED APPETITE [None]
  - DEHYDRATION [None]
  - DEPRESSED LEVEL OF CONSCIOUSNESS [None]
  - EMPHYSEMA [None]
  - GASTROINTESTINAL NECROSIS [None]
  - HEPATIC FUNCTION ABNORMAL [None]
  - HYPOVENTILATION [None]
  - INFLAMMATION [None]
  - INTESTINAL PERFORATION [None]
  - MYDRIASIS [None]
  - PERITONITIS [None]
  - PORTAL VENOUS GAS [None]
  - PUPILLARY REFLEX IMPAIRED [None]
  - RESPIRATORY ARREST [None]
  - SEPTIC SHOCK [None]
